FAERS Safety Report 7324680-6 (Version None)
Quarter: 2011Q1

REPORT INFORMATION
  Report Type: 
  Country: None (occurrence: None)
  Receive Date: 20110301
  Receipt Date: 20110224
  Transmission Date: 20110831
  Serious: Yes (Other)
  Sender: FDA-Public Use
  Company Number: BR-PFIZER INC-2010030372

PATIENT
  Age: 70 Year
  Sex: Female
  Weight: 74 kg

DRUGS (8)
  1. DIAZEPAM [Concomitant]
     Dosage: 10 MG, UNK
  2. PROPRANOLOL [Concomitant]
     Indication: TREMOR
     Dosage: 20 MG, UNK
  3. CHAMPIX [Suspect]
     Dosage: 1 MG, EACH 12 HOURS
     Route: 048
  4. NEOZINE [Concomitant]
     Dosage: 50 MG, UNK
  5. DAFLON 500 [Concomitant]
     Dosage: 500 MG, UNK
     Dates: start: 20091201
  6. PROPRANOLOL [Concomitant]
     Dosage: 10 MG, UNK
  7. CHAMPIX [Suspect]
     Dosage: UNK
     Route: 048
     Dates: start: 20101126
  8. CHAMPIX [Suspect]
     Indication: TOBACCO USER
     Dosage: UNK
     Route: 048
     Dates: start: 20080101

REACTIONS (6)
  - BLOOD PRESSURE ABNORMAL [None]
  - URINARY TRACT INFECTION [None]
  - ALOPECIA [None]
  - GINGIVAL DISORDER [None]
  - IMPLANT SITE INFLAMMATION [None]
  - ONYCHOCLASIS [None]
